FAERS Safety Report 11020346 (Version 2)
Quarter: 2015Q2

REPORT INFORMATION
  Report Type: Report from Study
  Country: US (occurrence: US)
  Receive Date: 20150413
  Receipt Date: 20150423
  Transmission Date: 20150821
  Serious: Yes (Hospitalization)
  Sender: FDA-Public Use
  Company Number: US-PFIZER INC-2015091738

PATIENT
  Age: 71 Year
  Sex: Female
  Weight: 88 kg

DRUGS (19)
  1. XELJANZ [Suspect]
     Active Substance: TOFACITINIB CITRATE
     Indication: RHEUMATOID ARTHRITIS
     Dosage: 2 DF (2 TABS), 2X/DAY
     Route: 048
     Dates: start: 20130107, end: 20150227
  2. TRAMADOL [Concomitant]
     Active Substance: TRAMADOL
  3. CINNAMON. [Concomitant]
     Active Substance: CINNAMON
  4. VITAMIN D3 [Concomitant]
     Active Substance: CHOLECALCIFEROL
  5. ALBUTEROL. [Concomitant]
     Active Substance: ALBUTEROL
  6. ATENOLOL. [Concomitant]
     Active Substance: ATENOLOL
  7. TYLENOL [Concomitant]
     Active Substance: ACETAMINOPHEN
  8. FLAXSEED [Concomitant]
     Active Substance: FLAX SEED
  9. FOLIC ACID. [Concomitant]
     Active Substance: FOLIC ACID
  10. MULTIVITAMINS [Concomitant]
     Active Substance: VITAMINS
  11. LOZOL [Concomitant]
     Active Substance: INDAPAMIDE
  12. TUDORZA INHALER [Concomitant]
  13. IBUPROFEN. [Concomitant]
     Active Substance: IBUPROFEN
  14. OMEPRAZOLE. [Concomitant]
     Active Substance: OMEPRAZOLE
  15. COLCRYS [Concomitant]
     Active Substance: COLCHICINE
  16. ZETIA [Concomitant]
     Active Substance: EZETIMIBE
  17. CRANBERRY. [Concomitant]
     Active Substance: CRANBERRY
  18. LOSARTAN [Concomitant]
     Active Substance: LOSARTAN
  19. VITAMIN B12 [Concomitant]
     Active Substance: CYANOCOBALAMIN

REACTIONS (1)
  - Atrial fibrillation [Recovered/Resolved]

NARRATIVE: CASE EVENT DATE: 20150227
